FAERS Safety Report 18553327 (Version 1)
Quarter: 2020Q4

REPORT INFORMATION
  Report Type: Spontaneous
  Country: FR (occurrence: FR)
  Receive Date: 20201127
  Receipt Date: 20201127
  Transmission Date: 20210114
  Serious: Yes (Other)
  Sender: FDA-Public Use
  Company Number: FR-SCIEGEN-2020SCILIT00406

PATIENT
  Age: 49 Year
  Sex: Female

DRUGS (2)
  1. ROSUVASTATIN TABLETS [Suspect]
     Active Substance: ROSUVASTATIN
     Indication: HYPERCHOLESTEROLAEMIA
     Dosage: UNKNOWN
     Route: 065
  2. CHLORMADINONE [Concomitant]
     Active Substance: CHLORMADINONE
     Indication: ENDOMETRIOSIS
     Dosage: UNKNOWN
     Route: 065

REACTIONS (1)
  - Ulnar tunnel syndrome [Recovering/Resolving]
